FAERS Safety Report 10143370 (Version 1)
Quarter: 2014Q2

REPORT INFORMATION
  Report Type: Spontaneous
  Country: US (occurrence: None)
  Receive Date: 20140429
  Receipt Date: 20140429
  Transmission Date: 20141212
  Serious: Yes (Other)
  Sender: FDA-Public Use
  Company Number: None

PATIENT
  Sex: Female

DRUGS (10)
  1. EXEMESTANE [Suspect]
     Indication: BREAST CANCER FEMALE
     Route: 048
     Dates: start: 20140209, end: 20140423
  2. AFINITOR 10MG NOVARTIS [Suspect]
     Indication: BREAST CANCER FEMALE
     Route: 048
     Dates: start: 20140209, end: 20140423
  3. FUROSEMIDE [Concomitant]
  4. METOPROLOL [Concomitant]
  5. LYSINE [Concomitant]
  6. MAGNESIUM [Concomitant]
  7. SENIOR VITAMINS [Concomitant]
  8. GLUCOSAMINE [Concomitant]
  9. VITB [Concomitant]
  10. PORTASSIUM [Concomitant]

REACTIONS (2)
  - Fatigue [None]
  - Abasia [None]
